FAERS Safety Report 11004024 (Version 1)
Quarter: 2015Q2

REPORT INFORMATION
  Report Type: Spontaneous
  Country: US (occurrence: None)
  Receive Date: 20150407
  Receipt Date: 20150407
  Transmission Date: 20150821
  Serious: Yes (Other)
  Sender: FDA-Public Use
  Company Number: HA15-093-AE

PATIENT
  Age: 18 Year
  Sex: Male
  Weight: 62.14 kg

DRUGS (2)
  1. DIAZEPAM. [Concomitant]
     Active Substance: DIAZEPAM
  2. HCB / APAP TABLETS [Suspect]
     Active Substance: ACETAMINOPHEN\HYDROCODONE BITARTRATE
     Indication: MUSCLE STRAIN
     Dosage: 3 TABLETS A DAY
     Route: 048
     Dates: start: 20150313, end: 20150321

REACTIONS (4)
  - Loss of consciousness [None]
  - Hypokinesia [None]
  - Seizure [None]
  - Motor dysfunction [None]

NARRATIVE: CASE EVENT DATE: 20150321
